FAERS Safety Report 5379247-6 (Version None)
Quarter: 2007Q3

REPORT INFORMATION
  Report Type: 
  Country: None (occurrence: None)
  Receive Date: 20070705
  Receipt Date: 20070627
  Transmission Date: 20080115
  Serious: Yes (Hospitalization)
  Sender: FDA-Public Use
  Company Number: IE-ROXANE LABORATORIES, INC-2007-BP-16357RO

PATIENT
  Age: 37 Year
  Sex: Female

DRUGS (2)
  1. CITALOPRAM HYDROBROMIDE [Suspect]
     Indication: DEPRESSION
     Dosage: 40MG/D, REDUCED TO 10MG/D
     Route: 048
  2. PROCHLORPERAZINE [Suspect]
     Indication: ANTIEMETIC SUPPORTIVE CARE
     Dosage: 12.5 MG X 3 (OVER 48H)
     Route: 030

REACTIONS (8)
  - AGITATION [None]
  - ANXIETY [None]
  - CYCLOTHYMIC DISORDER [None]
  - DRUG INTERACTION [None]
  - DRUG WITHDRAWAL SYNDROME [None]
  - DYSTONIA [None]
  - MUSCLE SPASMS [None]
  - SUICIDAL IDEATION [None]
